FAERS Safety Report 21254753 (Version 2)
Quarter: 2022Q3

REPORT INFORMATION
  Report Type: Report from Study
  Country: US (occurrence: US)
  Receive Date: 20220825
  Receipt Date: 20220902
  Transmission Date: 20221026
  Serious: Yes (Hospitalization)
  Sender: FDA-Public Use
  Company Number: US-VERTEX PHARMACEUTICALS-2022-012453

PATIENT
  Sex: Female

DRUGS (43)
  1. TRIKAFTA [Suspect]
     Active Substance: ELEXACAFTOR\IVACAFTOR\TEZACAFTOR
     Indication: Cystic fibrosis
     Dosage: 2 ORANGE TABS AM AND 1 BLUE TAB PM
     Route: 048
     Dates: start: 20210225
  2. ADVAIR HFA [Concomitant]
     Active Substance: FLUTICASONE PROPIONATE\SALMETEROL XINAFOATE
     Dosage: 250/50 DISKUS
  3. APAP;CODEINE [Concomitant]
     Dosage: 300-30MG
  4. AZITHROMYCIN [Concomitant]
     Active Substance: AZITHROMYCIN
  5. BENTYL [Concomitant]
     Active Substance: DICYCLOMINE HYDROCHLORIDE
  6. BENZONATATE [Concomitant]
     Active Substance: BENZONATATE
  7. BETHKIS [Concomitant]
     Active Substance: TOBRAMYCIN
     Dosage: 300MG/4ML AMP 224=1BOX
  8. CARAFATE [Concomitant]
     Active Substance: SUCRALFATE
  9. CRESEMBA [Concomitant]
     Active Substance: ISAVUCONAZONIUM SULFATE
  10. CYCLOBENZAPRINE [Concomitant]
     Active Substance: CYCLOBENZAPRINE
  11. ELIQUIS [Concomitant]
     Active Substance: APIXABAN
  12. FAMOTIDINE [Concomitant]
     Active Substance: FAMOTIDINE
  13. FLONASE ALLERGY RELIEF [Concomitant]
     Active Substance: FLUTICASONE PROPIONATE
  14. GUAIFENESIN [Concomitant]
     Active Substance: GUAIFENESIN
  15. LEVALBUTEROL [Concomitant]
     Active Substance: LEVALBUTEROL
     Dosage: 1.25MG/3ML
  16. LEVAQUIN [Concomitant]
     Active Substance: LEVOFLOXACIN
  17. LORATADINE [Concomitant]
     Active Substance: LORATADINE
  18. MELATONIN [Concomitant]
     Active Substance: MELATONIN
  19. MUCINEX [Concomitant]
     Active Substance: GUAIFENESIN
  20. PANCREAZE [Concomitant]
     Active Substance: PANCRELIPASE AMYLASE\PANCRELIPASE LIPASE\PANCRELIPASE PROTEASE
     Dosage: 2600 UNIT
  21. PANCREAZE [Concomitant]
     Active Substance: PANCRELIPASE AMYLASE\PANCRELIPASE LIPASE\PANCRELIPASE PROTEASE
     Dosage: 2100 UNIT
  22. PANTOPRAZOLE [Concomitant]
     Active Substance: PANTOPRAZOLE
  23. PERCOCET [Concomitant]
     Active Substance: ACETAMINOPHEN\OXYCODONE HYDROCHLORIDE
     Dosage: 2.5-325
  24. PROMETHAZINE [Concomitant]
     Active Substance: PROMETHAZINE HYDROCHLORIDE
  25. SALINE [Concomitant]
     Active Substance: SODIUM CHLORIDE
  26. SEROQUEL [Concomitant]
     Active Substance: QUETIAPINE FUMARATE
  27. SERTRALINE [Concomitant]
     Active Substance: SERTRALINE HYDROCHLORIDE
  28. TOPAMAX [Concomitant]
     Active Substance: TOPIRAMATE
  29. TRAMADOL HCL [Concomitant]
     Active Substance: TRAMADOL HYDROCHLORIDE
  30. URSODIOL [Concomitant]
     Active Substance: URSODIOL
  31. VITAMIN D3 [Concomitant]
     Active Substance: CHOLECALCIFEROL
     Dosage: 5000 UNIT (125MCG) CAP
  32. XIFAXAN [Concomitant]
     Active Substance: RIFAXIMIN
  33. ZOLOFT [Concomitant]
     Active Substance: SERTRALINE HYDROCHLORIDE
  34. CALCIUM CITRATE + D3 [Concomitant]
     Dosage: 315 + 250 TAB
  35. CAYSTON [Concomitant]
     Active Substance: AZTREONAM
  36. METAXALONE [Concomitant]
     Active Substance: METAXALONE
  37. LEVALBUTEROL TARTRATE [Concomitant]
     Active Substance: LEVALBUTEROL TARTRATE
  38. MIRALAX [Concomitant]
     Active Substance: POLYETHYLENE GLYCOL 3350
  39. ACETAMINOPHEN [Concomitant]
     Active Substance: ACETAMINOPHEN
  40. FERROUS SULFATE [Concomitant]
     Active Substance: FERROUS SULFATE
  41. TRAZODONE HCL [Concomitant]
     Active Substance: TRAZODONE HYDROCHLORIDE
  42. PULMOZYME [Concomitant]
     Active Substance: DORNASE ALFA
  43. POLYETHYLENE GLYCOL [Concomitant]
     Active Substance: POLYETHYLENE GLYCOL

REACTIONS (2)
  - Infective pulmonary exacerbation of cystic fibrosis [Recovered/Resolved]
  - Mycobacterium avium complex infection [Recovered/Resolved]

NARRATIVE: CASE EVENT DATE: 20220101
